FAERS Safety Report 7986344-5 (Version None)
Quarter: 2011Q4

REPORT INFORMATION
  Report Type: 
  Country: None (occurrence: None)
  Receive Date: 20111216
  Receipt Date: 20110117
  Transmission Date: 20120403
  Serious: No
  Sender: FDA-Public Use
  Company Number: US-GLAXOSMITHKLINE-A0684391A

PATIENT
  Age: 45 Year
  Sex: Male

DRUGS (8)
  1. DYAZIDE [Concomitant]
  2. WELLBUTRIN SR [Suspect]
     Indication: DEPRESSION
     Route: 048
  3. LOVISCOL [Concomitant]
  4. RISPERDAL [Concomitant]
  5. COREG CR [Suspect]
     Indication: TACHYCARDIA
     Dosage: 10MG PER DAY
     Route: 048
     Dates: start: 20071001
  6. SINGULAIR [Concomitant]
  7. ALLEGRA [Concomitant]
  8. ATIVAN [Concomitant]

REACTIONS (7)
  - ERYTHEMA [None]
  - MENIERE'S DISEASE [None]
  - PARAESTHESIA [None]
  - OEDEMA [None]
  - PAIN IN EXTREMITY [None]
  - PIGMENTATION DISORDER [None]
  - TINNITUS [None]
